FAERS Safety Report 13633682 (Version 1)
Quarter: 2017Q2

REPORT INFORMATION
  Report Type: Spontaneous
  Country: US (occurrence: US)
  Receive Date: 20170531
  Receipt Date: 20170531
  Transmission Date: 20170830
  Serious: No
  Sender: FDA-Public Use
  Company Number: US-ASTELLAS-1570829

PATIENT
  Age: 74 Year
  Sex: Female
  Weight: 54.93 kg

DRUGS (2)
  1. AQUAPHOR (UNITED STATES) [Concomitant]
  2. TARCEVA [Suspect]
     Active Substance: ERLOTINIB HYDROCHLORIDE
     Indication: LUNG NEOPLASM MALIGNANT
     Route: 048
     Dates: start: 20150421

REACTIONS (4)
  - Eye pain [Unknown]
  - Diarrhoea [Unknown]
  - Hypertension [Unknown]
  - Blister [Unknown]

NARRATIVE: CASE EVENT DATE: 20150428
